FAERS Safety Report 11491815 (Version 4)
Quarter: 2016Q4

REPORT INFORMATION
  Report Type: Report from Study
  Country: US (occurrence: US)
  Receive Date: 20150910
  Receipt Date: 20161017
  Transmission Date: 20170206
  Serious: No
  Sender: FDA-Public Use
  Company Number: PHEH2015US005690

PATIENT
  Age: 34 Year
  Sex: Female

DRUGS (2)
  1. COSENTYX [Suspect]
     Active Substance: SECUKINUMAB
     Dosage: 300 MG, QMO
     Route: 058
  2. COSENTYX [Suspect]
     Active Substance: SECUKINUMAB
     Indication: PSORIASIS
     Dosage: 300 MG, QMO
     Route: 058
     Dates: start: 20150318, end: 201511

REACTIONS (18)
  - Arthropathy [Unknown]
  - Injection site bruising [Unknown]
  - Seasonal allergy [Unknown]
  - Sinus congestion [Unknown]
  - Inappropriate schedule of drug administration [Unknown]
  - Anosmia [Unknown]
  - Pain in extremity [Unknown]
  - Nasal congestion [Unknown]
  - Psoriasis [Unknown]
  - Injection site haemorrhage [Recovered/Resolved]
  - Oropharyngeal pain [Not Recovered/Not Resolved]
  - Headache [Unknown]
  - Pyrexia [Unknown]
  - Cough [Recovering/Resolving]
  - Ageusia [Unknown]
  - Nasopharyngitis [Recovered/Resolved]
  - Injury [Unknown]
  - Weight decreased [Unknown]

NARRATIVE: CASE EVENT DATE: 20150318
